FAERS Safety Report 24785858 (Version 2)
Quarter: 2025Q3

REPORT INFORMATION
  Report Type: Spontaneous
  Country: US (occurrence: US)
  Receive Date: 20241229
  Receipt Date: 20250810
  Transmission Date: 20251020
  Serious: No
  Sender: ALEXION PHARMACEUTICALS
  Company Number: US-ASTRAZENECA-202412USA022545US

PATIENT
  Sex: Female

DRUGS (4)
  1. FASLODEX [Suspect]
     Active Substance: FULVESTRANT
     Indication: Breast cancer female
     Dosage: 75 MILLIGRAM, QD
     Dates: start: 20230831, end: 20231103
  2. FASLODEX [Suspect]
     Active Substance: FULVESTRANT
     Indication: Chemotherapy
  3. IBRANCE [Suspect]
     Active Substance: PALBOCICLIB
     Indication: Breast cancer female
     Dosage: 75 MILLIGRAM, QD
     Dates: start: 20230831, end: 20231103
  4. IBRANCE [Suspect]
     Active Substance: PALBOCICLIB
     Indication: Chemotherapy

REACTIONS (1)
  - Mental disorder [Recovered/Resolved]
